FAERS Safety Report 19035743 (Version 2)
Quarter: 2021Q2

REPORT INFORMATION
  Report Type: Report from Study
  Country: AR (occurrence: AR)
  Receive Date: 20210320
  Receipt Date: 20210402
  Transmission Date: 20210717
  Serious: Yes (Death, Hospitalization)
  Sender: FDA-Public Use
  Company Number: NVSC2021AR064951

PATIENT
  Age: 78 Year
  Sex: Male

DRUGS (1)
  1. EXELON [Suspect]
     Active Substance: RIVASTIGMINE TARTRATE
     Indication: BLOOD PRESSURE ABNORMAL
     Dosage: UNK
     Route: 065

REACTIONS (6)
  - Dementia with Lewy bodies [Fatal]
  - Loss of consciousness [Unknown]
  - Product use in unapproved indication [Unknown]
  - Cardio-respiratory arrest [Fatal]
  - Senile dementia [Unknown]
  - Illness [Unknown]

NARRATIVE: CASE EVENT DATE: 20140630
